FAERS Safety Report 8114096-7 (Version None)
Quarter: 2012Q1

REPORT INFORMATION
  Report Type: 
  Country: None (occurrence: None)
  Receive Date: 20120203
  Receipt Date: 20120130
  Transmission Date: 20120608
  Serious: Yes (Life-Threatening, Other)
  Sender: FDA-Public Use
  Company Number: US-ASTRAZENECA-2011SE66658

PATIENT
  Age: 79 Year
  Sex: Female

DRUGS (1)
  1. CRESTOR [Suspect]
     Route: 048

REACTIONS (5)
  - APPARENT DEATH [None]
  - EXTRASYSTOLES [None]
  - MEMORY IMPAIRMENT [None]
  - CONFUSIONAL STATE [None]
  - MYOCARDIAL INFARCTION [None]
